FAERS Safety Report 17931280 (Version 4)
Quarter: 2020Q4

REPORT INFORMATION
  Report Type: Spontaneous
  Country: NL (occurrence: NL)
  Receive Date: 20200623
  Receipt Date: 20201007
  Transmission Date: 20210113
  Serious: Yes (Other)
  Sender: FDA-Public Use
  Company Number: NL-JNJFOC-20200623618

PATIENT
  Sex: Female

DRUGS (18)
  1. PERINDOPRIL [Concomitant]
     Active Substance: PERINDOPRIL
  2. ACETYLSALICYLIC ACID [Concomitant]
     Active Substance: ASPIRIN
     Route: 065
     Dates: start: 20120809
  3. ADALIMUMAB [Concomitant]
     Active Substance: ADALIMUMAB
     Dosage: INDUCTION DOSE DAY 1: 2 INJECTIONS (40MG EACH).MAINTENANCE 1 INJECTION (40MG) EVERY 14 DAYS START 1
     Route: 065
     Dates: start: 20200715
  4. COLECALCIFEROL [Concomitant]
     Active Substance: CHOLECALCIFEROL
  5. DOVOBET [Concomitant]
     Active Substance: BETAMETHASONE\CALCIPOTRIENE
  6. LANSOPRAZOLE. [Concomitant]
     Active Substance: LANSOPRAZOLE
     Route: 048
     Dates: start: 20180725
  7. BUDESONIDE W/FORMOTEROL [Concomitant]
     Active Substance: BUDESONIDE\FORMOTEROL
     Dosage: (=160/4.5UG) 120DOTUR
     Dates: start: 20180906
  8. ALPRAZOLAM. [Concomitant]
     Active Substance: ALPRAZOLAM
     Dosage: 1 X PER DAY 2 TABLETS IF NECESSARY
     Route: 065
     Dates: start: 20180906
  9. FUROSEMIDE. [Concomitant]
     Active Substance: FUROSEMIDE
     Dosage: CHRONIC MEDICATION. REPEAT PRESCRIPTION 3 TIMES
     Route: 065
     Dates: start: 20140826
  10. SYMBICORT [Concomitant]
     Active Substance: BUDESONIDE\FORMOTEROL FUMARATE DIHYDRATE
  11. DESLORATADINE. [Concomitant]
     Active Substance: DESLORATADINE
     Route: 065
     Dates: start: 20180906
  12. BETAMETHASONE DIPROPIONATE W/CALCIPOTRIOL [Concomitant]
     Active Substance: BETAMETHASONE DIPROPIONATE\CALCIPOTRIENE
     Dosage: 0.5MG/50UG/G, 1 X PER DAY 1 APPLICATION 4 DAYS X WEEK, CHRONIC MEDICATION. REPEAT PRESCRIPTION 3 TIM
     Route: 065
     Dates: start: 20200728
  13. STELARA [Suspect]
     Active Substance: USTEKINUMAB
     Indication: PSORIASIS
     Route: 058
     Dates: start: 201309, end: 20200420
  14. ALPRAZOLAM. [Concomitant]
     Active Substance: ALPRAZOLAM
  15. DEXTRAN 70 W/HYPROMELLOSE [Concomitant]
     Dosage: 1/3MG/ML FL 15ML, 3-4 TIMES PER DAY 1 DROP IN BOTH EYES WHEN NECESSARY
     Dates: start: 20150824
  16. AZELASTINE W/FLUTICASONE [Concomitant]
     Dosage: 137/50UG/DO 120 DO,
     Route: 045
     Dates: start: 20180725
  17. MIRTAZAPINE. [Concomitant]
     Active Substance: MIRTAZAPINE
     Dosage: CHRONIC MEDICATION. REPEAT PRESCRIPTION 3 TIMES
     Route: 065
     Dates: start: 20140826
  18. MACROGOL [Concomitant]
     Active Substance: POLYETHYLENE GLYCOLS
     Dosage: 2 X PER DAY 1 SACHET IF NECESSARY
     Route: 048
     Dates: start: 20180906

REACTIONS (2)
  - Trigeminal nerve disorder [Recovered/Resolved]
  - Facial nerve disorder [Recovered/Resolved]

NARRATIVE: CASE EVENT DATE: 20200420
